FAERS Safety Report 10975883 (Version 3)
Quarter: 2017Q3

REPORT INFORMATION
  Report Type: Spontaneous
  Country: ES (occurrence: ES)
  Receive Date: 20150401
  Receipt Date: 20170915
  Transmission Date: 20171127
  Serious: Yes (Hospitalization, Other)
  Sender: FDA-Public Use
  Company Number: ES-PFIZER INC-2015107447

PATIENT
  Age: 66 Year
  Sex: Female

DRUGS (14)
  1. SEGURIL [Interacting]
     Active Substance: FUROSEMIDE
     Indication: SEPSIS
     Dosage: 20 MG, 1X/DAY (1-0-0)
     Route: 042
  2. MIANSERIN HYDROCHLORIDE [Interacting]
     Active Substance: MIANSERIN HYDROCHLORIDE
     Indication: DEPRESSION
     Dosage: 10 MG, UNK (0-0-1 / 2)
     Route: 048
     Dates: start: 20140618
  3. FLUMIL [Suspect]
     Active Substance: ACETYLCYSTEINE
     Indication: SEPSIS
     Dosage: 200 MG, 3X/DAY (1-1-1)
     Route: 048
  4. PRIMPERAN [Suspect]
     Active Substance: METOCLOPRAMIDE HYDROCHLORIDE
     Indication: SEPSIS
     Dosage: 10 MG, 3X/DAY (1-1-1)
     Route: 048
  5. MIANSERIN HYDROCHLORIDE [Interacting]
     Active Substance: MIANSERIN HYDROCHLORIDE
     Indication: POOR QUALITY SLEEP
  6. PREDNISONE. [Interacting]
     Active Substance: PREDNISONE
     Indication: SEPSIS
     Dosage: 5 MG, 1X/DAY (1-0-0)
     Route: 048
  7. QUETIAPINE. [Suspect]
     Active Substance: QUETIAPINE
     Indication: DEPRESSION
     Dosage: 25 MG, 1X/DAY (0-0-1)
     Route: 048
     Dates: start: 20140618
  8. QUETIAPINE. [Suspect]
     Active Substance: QUETIAPINE
     Indication: POOR QUALITY SLEEP
  9. CICLOFALINA [Suspect]
     Active Substance: PIRACETAM
     Indication: SEPSIS
     Dosage: 800 MG, 1X/DAY (0-0-1)
     Route: 048
  10. POTASION [Suspect]
     Active Substance: POTASSIUM CHLORIDE
     Indication: SEPSIS
     Dosage: 600 MG, UNK (0-2-0)
     Route: 048
  11. CLEXANE [Suspect]
     Active Substance: ENOXAPARIN SODIUM
     Indication: SEPSIS
     Dosage: 40 MG, 1X/DAY (0-1-0)
     Route: 058
  12. LINEZOLID. [Suspect]
     Active Substance: LINEZOLID
     Indication: INFECTION
     Dosage: 600 MG, 2X/DAY (1-0-1)
     Route: 042
  13. MEROPENEM. [Interacting]
     Active Substance: MEROPENEM
     Indication: SEPSIS
     Dosage: 500 MG, 1X/DAY (0-1-0)
     Route: 042
  14. OMEPRAZOLE. [Interacting]
     Active Substance: OMEPRAZOLE
     Indication: SEPSIS
     Dosage: 20 MG, 1X/DAY (1-0-0)
     Route: 048

REACTIONS (12)
  - Circumstance or information capable of leading to medication error [Unknown]
  - Drug interaction [Unknown]
  - Respiratory distress [Unknown]
  - Sedation [Unknown]
  - General physical health deterioration [Unknown]
  - Fatigue [Unknown]
  - Aspiration [Unknown]
  - Tremor [Unknown]
  - Electrolyte imbalance [Recovered/Resolved]
  - Dizziness [Unknown]
  - Palpitations [Unknown]
  - Confusional state [Unknown]

NARRATIVE: CASE EVENT DATE: 20140625
